FAERS Safety Report 17451845 (Version 3)
Quarter: 2020Q1

REPORT INFORMATION
  Report Type: Spontaneous
  Country: IN (occurrence: IN)
  Receive Date: 20200224
  Receipt Date: 20200227
  Transmission Date: 20200409
  Serious: Yes (Other)
  Sender: FDA-Public Use
  Company Number: IN-BAUSCH-BL-2020-005190

PATIENT
  Age: 80 Year
  Sex: Female

DRUGS (4)
  1. DORZOLAMIDE [Concomitant]
     Active Substance: DORZOLAMIDE
     Indication: ANGLE CLOSURE GLAUCOMA
     Route: 061
  2. BIMATOPROST. [Concomitant]
     Active Substance: BIMATOPROST
     Indication: ANGLE CLOSURE GLAUCOMA
     Route: 061
     Dates: end: 2019
  3. BRIMONIDINE [Suspect]
     Active Substance: BRIMONIDINE TARTRATE
     Indication: ANGLE CLOSURE GLAUCOMA
     Route: 065
     Dates: start: 2019, end: 2019
  4. LEVOBUNOLOL [Concomitant]
     Active Substance: LEVOBUNOLOL
     Indication: ANGLE CLOSURE GLAUCOMA
     Route: 061

REACTIONS (1)
  - Uveitis [Recovered/Resolved]

NARRATIVE: CASE EVENT DATE: 2019
